FAERS Safety Report 8422985-9 (Version None)
Quarter: 2012Q2

REPORT INFORMATION
  Report Type: 
  Country: None (occurrence: None)
  Receive Date: 20120608
  Receipt Date: 20120531
  Transmission Date: 20120825
  Serious: Yes (Hospitalization)
  Sender: FDA-Public Use
  Company Number: US-JNJFOC-20120509798

PATIENT
  Sex: Female

DRUGS (5)
  1. XARELTO [Suspect]
     Indication: THROMBOSIS PROPHYLAXIS
     Route: 048
     Dates: start: 20120330, end: 20120409
  2. CHANTIX [Concomitant]
     Indication: TOBACCO USER
  3. SIMVASTATIN [Concomitant]
     Indication: BLOOD CHOLESTEROL
  4. NEXIUM [Concomitant]
     Indication: ABDOMINAL DISCOMFORT
  5. MORPHINE [Concomitant]
     Indication: PAIN

REACTIONS (2)
  - DRUG HYPERSENSITIVITY [None]
  - RASH GENERALISED [None]
